FAERS Safety Report 14963462 (Version 2)
Quarter: 2018Q2

REPORT INFORMATION
  Report Type: Spontaneous
  Country: US (occurrence: US)
  Receive Date: 20180601
  Receipt Date: 20180620
  Transmission Date: 20180711
  Serious: Yes (Other)
  Sender: FDA-Public Use
  Company Number: US-D.O.R.C. INTERNATIONAL, B.V.-2048867

PATIENT

DRUGS (1)
  1. VISIONBLUE [Suspect]
     Active Substance: TRYPAN BLUE
     Indication: EYE DISORDER
     Route: 031
     Dates: start: 20180510, end: 20180510

REACTIONS (1)
  - Medication residue present [Recovered/Resolved]

NARRATIVE: CASE EVENT DATE: 20180510
